FAERS Safety Report 13649432 (Version 1)
Quarter: 2017Q2

REPORT INFORMATION
  Report Type: Report from Study
  Country: None (occurrence: US)
  Receive Date: 20170613
  Receipt Date: 20170613
  Transmission Date: 20170830
  Serious: Yes (Hospitalization)
  Sender: FDA-Public Use
  Company Number: US-ABBVIE-17K-163-2001866-00

PATIENT
  Age: 13 Year
  Sex: Female

DRUGS (1)
  1. HUMIRA [Suspect]
     Active Substance: ADALIMUMAB
     Indication: CROHN^S DISEASE
     Route: 058
     Dates: start: 20170506

REACTIONS (4)
  - Clostridium difficile colitis [Recovering/Resolving]
  - Crohn^s disease [Recovering/Resolving]
  - Intestinal obstruction [Recovering/Resolving]
  - Abscess intestinal [Recovering/Resolving]

NARRATIVE: CASE EVENT DATE: 201706
